FAERS Safety Report 9071696 (Version 1)
Quarter: 2013Q1

REPORT INFORMATION
  Report Type: Report from Study
  Country: US (occurrence: US)
  Receive Date: 20130129
  Receipt Date: 20130129
  Transmission Date: 20140127
  Serious: No
  Sender: FDA-Public Use
  Company Number: US-ABBOTT-12P-163-0929918-00

PATIENT
  Age: 65 Year
  Sex: Male

DRUGS (5)
  1. HUMIRA 40 MG/0.8 ML PEN [Suspect]
     Indication: CROHN^S DISEASE
     Dates: start: 20120327
  2. ENTOCORT EC [Concomitant]
     Indication: CROHN^S DISEASE
     Dosage: EVERY MORNING
  3. PENTASA [Concomitant]
     Indication: CROHN^S DISEASE
  4. PRILOSEC [Concomitant]
     Indication: PRODUCT USED FOR UNKNOWN INDICATION
     Dosage: DAILY
  5. PERCOCET [Concomitant]
     Indication: PAIN
     Dosage: 10/325, AS REQUIRED

REACTIONS (4)
  - Enterocutaneous fistula [Unknown]
  - Dizziness [Not Recovered/Not Resolved]
  - Vomiting [Not Recovered/Not Resolved]
  - Infection [Unknown]
